FAERS Safety Report 11337393 (Version 1)
Quarter: 2015Q3

REPORT INFORMATION
  Report Type: Spontaneous
  Country: US (occurrence: US)
  Receive Date: 20150803
  Receipt Date: 20150803
  Transmission Date: 20151125
  Serious: Yes (Hospitalization, Other)
  Sender: FDA-Public Use
  Company Number: US-ELI_LILLY_AND_COMPANY-US200802004475

PATIENT
  Age: 43 Year
  Sex: Male
  Weight: 111 kg

DRUGS (6)
  1. ZYPREXA [Suspect]
     Active Substance: OLANZAPINE
     Dosage: 7.5 MG, UNK
     Dates: start: 199908, end: 20070608
  2. WELLBUTRIN [Concomitant]
     Active Substance: BUPROPION HYDROCHLORIDE
     Dates: start: 19980107, end: 200706
  3. TEGRETOL [Concomitant]
     Active Substance: CARBAMAZEPINE
     Dates: start: 19960422, end: 200706
  4. EFFEXOR [Concomitant]
     Active Substance: VENLAFAXINE HYDROCHLORIDE
     Dates: start: 200706
  5. LITHANE [Concomitant]
     Active Substance: LITHIUM CARBONATE
     Dates: start: 19951031, end: 200706
  6. RISPERDAL [Concomitant]
     Active Substance: RISPERIDONE
     Dates: start: 19960715, end: 200706

REACTIONS (7)
  - Blood cholesterol increased [Unknown]
  - Hypertension [Unknown]
  - Diabetes mellitus [Not Recovered/Not Resolved]
  - Metabolic disorder [Unknown]
  - Diabetic coma [Unknown]
  - Blood triglycerides increased [Unknown]
  - Diabetic ketoacidosis [Unknown]

NARRATIVE: CASE EVENT DATE: 200702
